FAERS Safety Report 23482096 (Version 1)
Quarter: 2024Q1

REPORT INFORMATION
  Report Type: Spontaneous
  Country: JP (occurrence: JP)
  Receive Date: 20240205
  Receipt Date: 20240205
  Transmission Date: 20240409
  Serious: Yes (Death)
  Sender: FDA-Public Use
  Company Number: JP-JNJFOC-20240206011

PATIENT
  Age: 79 Year
  Sex: Female

DRUGS (2)
  1. OPSUMIT [Suspect]
     Active Substance: MACITENTAN
     Indication: Heart disease congenital
     Route: 048
     Dates: end: 20240128
  2. UPTRAVI [Concomitant]
     Active Substance: SELEXIPAG
     Indication: Heart disease congenital
     Route: 048
     Dates: end: 20240128

REACTIONS (2)
  - Heart disease congenital [Fatal]
  - Off label use [Unknown]
